FAERS Safety Report 17806692 (Version 3)
Quarter: 2020Q2

REPORT INFORMATION
  Report Type: Report from Study
  Country: KW (occurrence: KW)
  Receive Date: 20200520
  Receipt Date: 20200529
  Transmission Date: 20200714
  Serious: Yes (Death, Other)
  Sender: FDA-Public Use
  Company Number: NVSC2020KW135069

PATIENT
  Age: 15 Month
  Sex: Male
  Weight: 9.1 kg

DRUGS (5)
  1. ONASEMNOGENE ABEPARVOVEC [Suspect]
     Active Substance: ONASEMNOGENE ABEPARVOVEC
     Indication: SPINAL MUSCULAR ATROPHY
     Dosage: 1.1 ? 1014 VECTOR GENOMES PER KILOGRAM
     Route: 042
     Dates: start: 20200510
  2. OMEPRAZOLE. [Concomitant]
     Active Substance: OMEPRAZOLE
     Indication: PRODUCT USED FOR UNKNOWN INDICATION
     Dosage: 10 MG, QD
     Route: 065
     Dates: start: 20200508
  3. PARACETAMOL [Concomitant]
     Active Substance: ACETAMINOPHEN
     Indication: PRODUCT USED FOR UNKNOWN INDICATION
     Route: 065
  4. MEROPENEM. [Concomitant]
     Active Substance: MEROPENEM
     Indication: PRODUCT USED FOR UNKNOWN INDICATION
     Dosage: 40 MG, Q8H
     Route: 065
  5. PREDNISOLONE. [Concomitant]
     Active Substance: PREDNISOLONE
     Indication: PRODUCT USED FOR UNKNOWN INDICATION
     Dosage: 1 MG/KG, QD
     Route: 065
     Dates: start: 20200509

REACTIONS (24)
  - Blood lactate dehydrogenase increased [Unknown]
  - Alanine aminotransferase increased [Unknown]
  - Myocarditis [Unknown]
  - Blood potassium increased [Unknown]
  - Cardiac arrest [Fatal]
  - Blood sodium increased [Unknown]
  - Blood phosphorus increased [Unknown]
  - Amylase increased [Unknown]
  - Bilirubin conjugated increased [Unknown]
  - Carbon dioxide decreased [Unknown]
  - Blood calcium decreased [Unknown]
  - Gamma-glutamyltransferase increased [Unknown]
  - Blood chloride increased [Unknown]
  - Blood osmolarity increased [Unknown]
  - Blood urea increased [Unknown]
  - Tachycardia [Unknown]
  - Anion gap increased [Unknown]
  - Protein total decreased [Unknown]
  - Blood albumin decreased [Unknown]
  - Blood glucose increased [Unknown]
  - Aspartate aminotransferase increased [Unknown]
  - Cardiac dysfunction [Unknown]
  - Troponin increased [Unknown]
  - Blood uric acid increased [Unknown]

NARRATIVE: CASE EVENT DATE: 20200513
